FAERS Safety Report 10330842 (Version 3)
Quarter: 2014Q3

REPORT INFORMATION
  Report Type: Spontaneous
  Country: US (occurrence: None)
  Receive Date: 20140718
  Receipt Date: 20140818
  Transmission Date: 20150326
  Serious: Yes (Hospitalization, Other)
  Sender: FDA-Public Use
  Company Number: UNT-2014-003807

PATIENT
  Age: 78 Year
  Sex: Female
  Weight: 54.4 kg

DRUGS (1)
  1. TYVASO [Suspect]
     Active Substance: TREPROSTINIL
     Indication: COR PULMONALE CHRONIC
     Route: 055
     Dates: start: 20140610

REACTIONS (21)
  - Gastrooesophageal reflux disease [None]
  - Malaise [None]
  - Cardiac valve disease [None]
  - Renal failure chronic [None]
  - Hypertension [None]
  - Bronchitis [None]
  - Pulmonary arterial hypertension [None]
  - Restless legs syndrome [None]
  - Rheumatoid arthritis [None]
  - Oedema [None]
  - Acute respiratory failure [None]
  - Scleroderma [None]
  - Sjogren^s syndrome [None]
  - Pulmonary oedema [None]
  - Dyspnoea [None]
  - Right ventricular failure [None]
  - Anaemia of chronic disease [None]
  - Depression [None]
  - Cough [None]
  - Raynaud^s phenomenon [None]
  - Chronic obstructive pulmonary disease [None]

NARRATIVE: CASE EVENT DATE: 2014
